FAERS Safety Report 16779250 (Version 3)
Quarter: 2020Q4

REPORT INFORMATION
  Report Type: Spontaneous
  Country: US (occurrence: US)
  Receive Date: 20190906
  Receipt Date: 20201105
  Transmission Date: 20210113
  Serious: No
  Sender: FDA-Public Use
  Company Number: US-PFIZER INC-2016376407

PATIENT
  Age: 40 Year
  Sex: Female
  Weight: 63 kg

DRUGS (15)
  1. LYRICA [Suspect]
     Active Substance: PREGABALIN
     Dosage: 50 MG, 1X/DAY
     Route: 048
  2. LYRICA [Suspect]
     Active Substance: PREGABALIN
     Dosage: 100 MG, 2X/DAY (TAKE 100 MG BID(TWICE DAILY) X 5 DAYS)
  3. LYRICA [Suspect]
     Active Substance: PREGABALIN
     Dosage: 400 MG, DAILY (100 MG IN THE MORNING AND 300 MG AT BEDTIME)
     Dates: start: 20161227
  4. LYRICA [Suspect]
     Active Substance: PREGABALIN
     Dosage: 50 MG, 1X/DAY
     Route: 048
     Dates: start: 20181220
  5. LYRICA [Suspect]
     Active Substance: PREGABALIN
     Dosage: 100 MG, 1X/DAY
     Route: 048
     Dates: start: 20190322
  6. LYRICA [Suspect]
     Active Substance: PREGABALIN
     Dosage: 300 MG, DAILY (1 CAPSULE IN THE MORNING AND 2 CAPSULE IN THE EVENING)
     Route: 048
  7. LYRICA [Suspect]
     Active Substance: PREGABALIN
     Dosage: 300 MG, DAILY (TAKE 100 MG AM AND 200 MG HS(AT BEDTIME) X 5 DAYS)
  8. LYRICA [Suspect]
     Active Substance: PREGABALIN
     Dosage: 200 MG, 1X/DAY (EVERY NIGHT AT BEDTIME)
     Route: 048
     Dates: start: 201903
  9. LYRICA [Suspect]
     Active Substance: PREGABALIN
     Dosage: 300 MG, DAILY (TAKE 100 MG IN THE MORNING AND 200 MG AT BEDTIME)
     Dates: start: 20171127
  10. LYRICA [Suspect]
     Active Substance: PREGABALIN
     Dosage: 400 MG, DAILY (TAKE 100 MG AM AND 300 MG HS(AT BEDTIME) THEREAFTER)
  11. LYRICA [Suspect]
     Active Substance: PREGABALIN
     Dosage: 300 MG, DAILY, (TAKE 100 MG IN THE MORNING AND 200 MG AT BEDTIME)
     Dates: start: 20170906
  12. LYRICA [Suspect]
     Active Substance: PREGABALIN
     Indication: HEADACHE
     Dosage: 400 MG, DAILY (100 MG IN THE MORNING AND 300 MG AT BEDTIME)
     Dates: start: 20160805, end: 2016
  13. LYRICA [Suspect]
     Active Substance: PREGABALIN
     Indication: MIGRAINE
     Dosage: 400 MG, DAILY (100 MG IN THE MORNING AND 300 MG AT BEDTIME)
     Dates: start: 20161108, end: 2016
  14. LYRICA [Suspect]
     Active Substance: PREGABALIN
     Dosage: 50 MG, 1X/DAY
     Route: 048
  15. LYRICA [Suspect]
     Active Substance: PREGABALIN
     Dosage: 300 MG, DAILY(100 MG IN THE MORNING AND 200 MG IN THE EVENING)
     Dates: start: 20190828

REACTIONS (3)
  - Off label use [Unknown]
  - Product use in unapproved indication [Unknown]
  - Illness [Recovered/Resolved]

NARRATIVE: CASE EVENT DATE: 20160805
